FAERS Safety Report 10302957 (Version 2)
Quarter: 2014Q3

REPORT INFORMATION
  Report Type: Spontaneous
  Country: US (occurrence: US)
  Receive Date: 20140714
  Receipt Date: 20140714
  Transmission Date: 20150326
  Serious: Yes (Hospitalization, Other)
  Sender: FDA-Public Use
  Company Number: US-009507513-2011SP000219

PATIENT
  Sex: Female
  Weight: 146.51 kg

DRUGS (6)
  1. GLIPIZIDE. [Concomitant]
     Active Substance: GLIPIZIDE
     Indication: DIABETES MELLITUS
     Dates: start: 200810
  2. HYDROCHLOROTHIAZIDE. [Concomitant]
     Active Substance: HYDROCHLOROTHIAZIDE
     Indication: HYPERTENSION
     Dates: start: 200810
  3. METFORMIN [Concomitant]
     Active Substance: METFORMIN HYDROCHLORIDE
     Indication: DIABETES MELLITUS
     Dates: start: 200810
  4. LISINOPRIL. [Concomitant]
     Active Substance: LISINOPRIL
     Indication: HYPERTENSION
     Dates: start: 200810
  5. NUVARING [Suspect]
     Active Substance: ETHINYL ESTRADIOL\ETONOGESTREL
     Indication: CONTRACEPTION
     Route: 067
     Dates: start: 200308, end: 200901
  6. METOPROLOL [Concomitant]
     Active Substance: METOPROLOL
     Indication: HYPERTENSION
     Dates: start: 200810

REACTIONS (14)
  - Diabetes mellitus inadequate control [Unknown]
  - Postoperative wound infection [Recovered/Resolved]
  - Dysmenorrhoea [Unknown]
  - Hypertensive crisis [Recovered/Resolved]
  - Cerebral infarction [Unknown]
  - Nausea [Unknown]
  - Dizziness [Recovered/Resolved]
  - Brain injury [Unknown]
  - Otitis media [Recovered/Resolved]
  - Hypertension [Unknown]
  - Fatigue [Unknown]
  - Intracranial aneurysm [Unknown]
  - Left ventricular hypertrophy [Unknown]
  - Anaemia [Unknown]

NARRATIVE: CASE EVENT DATE: 200308
